FAERS Safety Report 6815001-3 (Version None)
Quarter: 2010Q3

REPORT INFORMATION
  Report Type: 
  Country: None (occurrence: None)
  Receive Date: 20100702
  Receipt Date: 20100624
  Transmission Date: 20110219
  Serious: Yes (Death, Life-Threatening, Hospitalization)
  Sender: FDA-Public Use
  Company Number: JP-SANOFI-AVENTIS-2010SA037895

PATIENT
  Age: 72 Year
  Sex: Male

DRUGS (8)
  1. FLUDARABINE PHOSPHATE [Suspect]
     Route: 048
     Dates: start: 20081016, end: 20081020
  2. CYCLOPHOSPHAMIDE [Concomitant]
  3. VINCRISTINE [Concomitant]
     Route: 042
  4. PREDNISOLONE [Concomitant]
  5. COTRIM [Concomitant]
     Route: 048
     Dates: start: 20081006, end: 20090619
  6. FLUCONAZOLE [Concomitant]
     Route: 048
     Dates: start: 20081006, end: 20090619
  7. PARIET [Concomitant]
     Route: 048
     Dates: start: 20081016, end: 20090619
  8. PREDONINE [Concomitant]
     Route: 048
     Dates: start: 20081031, end: 20081201

REACTIONS (5)
  - DISEASE PROGRESSION [None]
  - HEPATIC FUNCTION ABNORMAL [None]
  - HEPATITIS B [None]
  - NEUTROPHIL COUNT DECREASED [None]
  - SEPSIS [None]
